FAERS Safety Report 6004594-4 (Version None)
Quarter: 2008Q4

REPORT INFORMATION
  Report Type: 
  Country: None (occurrence: None)
  Receive Date: 20081216
  Receipt Date: 20071109
  Transmission Date: 20090506
  Serious: Yes (Other)
  Sender: FDA-Public Use
  Company Number: US-BRISTOL-MYERS SQUIBB COMPANY-14107155

PATIENT

DRUGS (1)
  1. PRAVACHOL [Suspect]

REACTIONS (1)
  - RHABDOMYOLYSIS [None]
